FAERS Safety Report 7742564-6 (Version None)
Quarter: 2011Q3

REPORT INFORMATION
  Report Type: 
  Country: None (occurrence: None)
  Receive Date: 20110902
  Receipt Date: 20110822
  Transmission Date: 20111222
  Serious: Yes (Hospitalization)
  Sender: FDA-Public Use
  Company Number: 2011SP039597

PATIENT
  Sex: Female

DRUGS (1)
  1. PEG-INTRON [Suspect]
     Indication: PRODUCT USED FOR UNKNOWN INDICATION
     Dosage: 150 MCG

REACTIONS (3)
  - INCORRECT STORAGE OF DRUG [None]
  - DRUG DOSE OMISSION [None]
  - UPPER RESPIRATORY TRACT INFECTION [None]
